FAERS Safety Report 5657189-6 (Version None)
Quarter: 2008Q1

REPORT INFORMATION
  Report Type: 
  Country: None (occurrence: None)
  Receive Date: 20080306
  Receipt Date: 20080306
  Transmission Date: 20080703
  Serious: Yes (Other)
  Sender: FDA-Public Use
  Company Number: None

PATIENT
  Age: 68 Year
  Sex: Male

DRUGS (3)
  1. VYTORIN [Suspect]
     Indication: HYPERLIPIDAEMIA
     Dosage: 1 TABLET AT BEDTIME PO
     Route: 048
     Dates: start: 20071210, end: 20080117
  2. ASPIRIN [Concomitant]
  3. ATENOLOL [Concomitant]

REACTIONS (1)
  - URINARY RETENTION [None]
